FAERS Safety Report 9169656 (Version 2)
Quarter: 2013Q1

REPORT INFORMATION
  Report Type: Spontaneous
  Country: US (occurrence: US)
  Receive Date: 20130318
  Receipt Date: 20130326
  Transmission Date: 20140127
  Serious: Yes (Death, Hospitalization, Other)
  Sender: FDA-Public Use
  Company Number: US-BAXTER-2013BAX008929

PATIENT
  Age: 78 Year
  Sex: Female

DRUGS (1)
  1. DIANEAL PD2 [Suspect]
     Indication: PERITONEAL DIALYSIS
     Route: 033
     Dates: start: 20100312, end: 20121231

REACTIONS (7)
  - Death [Fatal]
  - Gastric haemorrhage [Unknown]
  - Pleuroperitoneal communication [Not Recovered/Not Resolved]
  - Pleuroperitoneal communication [Not Recovered/Not Resolved]
  - Blood pressure decreased [Unknown]
  - Asthenia [Unknown]
  - Discomfort [Unknown]
